FAERS Safety Report 17773903 (Version 1)
Quarter: 2020Q2

REPORT INFORMATION
  Report Type: Spontaneous
  Country: CN (occurrence: CN)
  Receive Date: 20200513
  Receipt Date: 20200513
  Transmission Date: 20200714
  Serious: Yes (Other)
  Sender: FDA-Public Use
  Company Number: CN-ACS-001701

PATIENT
  Age: 8 Year
  Sex: Male

DRUGS (2)
  1. CEFTAZIDIME. [Suspect]
     Active Substance: CEFTAZIDIME
     Route: 042
  2. GLUCOSE 0.5% [Concomitant]
     Route: 042

REACTIONS (2)
  - Hydronephrosis [Recovered/Resolved]
  - Calculus urinary [Recovered/Resolved]
